FAERS Safety Report 24006692 (Version 4)
Quarter: 2024Q3

REPORT INFORMATION
  Report Type: Spontaneous
  Country: JP (occurrence: JP)
  Receive Date: 20240624
  Receipt Date: 20240813
  Transmission Date: 20241017
  Serious: Yes (Hospitalization, Other)
  Sender: MERCK
  Company Number: JP-MSD-M2024-23884

PATIENT
  Age: 68 Year
  Sex: Female

DRUGS (3)
  1. KEYTRUDA [Suspect]
     Active Substance: PEMBROLIZUMAB
     Indication: Non-small cell lung cancer
     Dosage: 400 MILLIGRAM, EVERY 6 WEEKS
     Route: 041
     Dates: start: 20240606
  2. OXYCODONE HYDROCHLORIDE [Concomitant]
     Active Substance: OXYCODONE HYDROCHLORIDE
     Dosage: UNK
     Route: 065
  3. CALONAL [Concomitant]
     Active Substance: ACETAMINOPHEN
     Dosage: UNK
     Route: 065

REACTIONS (3)
  - Oral candidiasis [Not Recovered/Not Resolved]
  - Liver disorder [Recovering/Resolving]
  - Interstitial lung disease [Unknown]

NARRATIVE: CASE EVENT DATE: 20240610
